FAERS Safety Report 5552444-2 (Version None)
Quarter: 2007Q4

REPORT INFORMATION
  Report Type: 
  Country: None (occurrence: None)
  Receive Date: 20071205
  Receipt Date: 20071128
  Transmission Date: 20080405
  Serious: Yes (Other)
  Sender: FDA-Public Use
  Company Number: CHPA2007US12869

PATIENT
  Age: 18 Year
  Sex: Female
  Weight: 55.3 kg

DRUGS (1)
  1. VAGISTAT-1 [Suspect]
     Indication: VULVOVAGINAL MYCOTIC INFECTION
     Dosage: 300 MG,ONCE/SINGLE, VAGINAL
     Dates: start: 20071127, end: 20071127

REACTIONS (1)
  - VAGINAL HAEMORRHAGE [None]
